FAERS Safety Report 6344674-7 (Version None)
Quarter: 2009Q3

REPORT INFORMATION
  Report Type: 
  Country: None (occurrence: None)
  Receive Date: 20090821
  Receipt Date: 20090507
  Transmission Date: 20100115
  Serious: No
  Sender: FDA-Public Use
  Company Number: 8045969

PATIENT
  Age: 23 Year
  Sex: Female
  Weight: 45.4 kg

DRUGS (1)
  1. CIMZIA [Suspect]
     Indication: CROHN'S DISEASE
     Dosage: 400 MG SC
     Route: 058
     Dates: start: 20090422

REACTIONS (2)
  - DIARRHOEA [None]
  - INFLUENZA LIKE ILLNESS [None]
